FAERS Safety Report 10144657 (Version 1)
Quarter: 2014Q2

REPORT INFORMATION
  Report Type: Spontaneous
  Country: US (occurrence: US)
  Receive Date: 20140430
  Receipt Date: 20140430
  Transmission Date: 20141212
  Serious: No
  Sender: FDA-Public Use
  Company Number: US-SANOFI-AVENTIS-2013SA056529

PATIENT
  Age: 77 Year
  Sex: Female

DRUGS (2)
  1. LOVENOX [Suspect]
     Indication: CARDIOVERSION
     Dates: start: 201305
  2. AMIODARONE [Concomitant]

REACTIONS (3)
  - Fall [Not Recovered/Not Resolved]
  - Injection site bruising [Not Recovered/Not Resolved]
  - Injection site mass [Not Recovered/Not Resolved]
